FAERS Safety Report 8962317 (Version 1)
Quarter: 2012Q4

REPORT INFORMATION
  Report Type: Spontaneous
  Country: IN (occurrence: None)
  Receive Date: 20121203
  Receipt Date: 20121203
  Transmission Date: 20130627
  Serious: Yes (Other)
  Sender: FDA-Public Use
  Company Number: 2012-01715

PATIENT
  Age: 2 Year
  Sex: Male
  Weight: 14 kg

DRUGS (6)
  1. ETHAMBUTOL [Suspect]
     Indication: TUBERCULOUS MENINGITIS
  2. ISONIAZID [Suspect]
     Indication: TUBERCULOUS MENINGITIS
  3. RIFAMPICIN [Suspect]
  4. STREPTOMYCIN [Suspect]
     Indication: TUBERCULOUS MENINGITIS
  5. PHENYTOIN [Suspect]
     Indication: TUBERCULOUS MENINGITIS
  6. OFLOXACIN [Suspect]
     Indication: TUBERCULOUS MENINGITIS

REACTIONS (4)
  - Meningitis tuberculous [None]
  - Disease progression [None]
  - Paradoxical drug reaction [None]
  - Immune reconstitution inflammatory syndrome [None]
